FAERS Safety Report 9439656 (Version 2)
Quarter: 2013Q3

REPORT INFORMATION
  Report Type: Spontaneous
  Country: US (occurrence: US)
  Receive Date: 20130805
  Receipt Date: 20130819
  Transmission Date: 20140515
  Serious: No
  Sender: FDA-Public Use
  Company Number: US-PFIZER INC-2013224427

PATIENT
  Age: 66 Year
  Sex: Male

DRUGS (1)
  1. XALKORI [Suspect]
     Indication: LUNG NEOPLASM MALIGNANT
     Dosage: 240 MG, 2X/DAY
     Route: 048
     Dates: start: 20130710

REACTIONS (3)
  - Fatigue [Unknown]
  - Photosensitivity reaction [Unknown]
  - Constipation [Unknown]
